FAERS Safety Report 4446461-3 (Version None)
Quarter: 2004Q3

REPORT INFORMATION
  Report Type: 
  Country: None (occurrence: None)
  Receive Date: 20040907
  Receipt Date: 20040820
  Transmission Date: 20050211
  Serious: Yes (Hospitalization)
  Sender: FDA-Public Use
  Company Number: 199224

PATIENT
  Age: 45 Year
  Sex: Male

DRUGS (10)
  1. AVONEX [Suspect]
     Indication: MULTIPLE SCLEROSIS
     Dosage: 30 MCG QW IM
     Route: 030
     Dates: start: 20020618
  2. NEURONTIN [Concomitant]
  3. PLAVIX [Concomitant]
  4. PAXIL [Concomitant]
  5. LIPITOR [Concomitant]
  6. WELLBUTRIN [Concomitant]
  7. VIOXX [Concomitant]
  8. LISINOPRIL [Concomitant]
  9. METOPROLOL [Concomitant]
  10. FLEXERIL [Concomitant]

REACTIONS (1)
  - LUNG INFECTION [None]
